FAERS Safety Report 7954694-4 (Version None)
Quarter: 2011Q4

REPORT INFORMATION
  Report Type: 
  Country: None (occurrence: None)
  Receive Date: 20111202
  Receipt Date: 20111122
  Transmission Date: 20120403
  Serious: Yes (Other)
  Sender: FDA-Public Use
  Company Number: CA-JNJFOC-20110801033

PATIENT
  Sex: Female
  Weight: 133 kg

DRUGS (6)
  1. INNOHEP [Concomitant]
     Route: 058
  2. ADVAIR DISKUS 100/50 [Concomitant]
     Dosage: AS AND WHEN REQUIRED
     Route: 065
  3. REMICADE [Suspect]
     Route: 042
     Dates: start: 20110727
  4. VENTOLIN [Concomitant]
     Dosage: AS AND WHEN REQUIRED
     Route: 055
  5. REMICADE [Suspect]
     Indication: CROHN'S DISEASE
     Route: 042
     Dates: start: 20110211
  6. FLOVENT [Concomitant]
     Route: 055

REACTIONS (2)
  - GESTATIONAL DIABETES [None]
  - MATERNAL EXPOSURE DURING PREGNANCY [None]
